FAERS Safety Report 8138887-1 (Version None)
Quarter: 2012Q1

REPORT INFORMATION
  Report Type: 
  Country: None (occurrence: None)
  Receive Date: 20120215
  Receipt Date: 20120206
  Transmission Date: 20120608
  Serious: Yes (Other)
  Sender: FDA-Public Use
  Company Number: US-ELI_LILLY_AND_COMPANY-US201202001943

PATIENT
  Age: 45 Year
  Sex: Female

DRUGS (3)
  1. GEMZAR [Suspect]
     Indication: BILE DUCT CANCER
     Dosage: 500 MG/M2, EVERY TWO WEEKS
  2. ERBITUX [Concomitant]
     Dosage: UNK, UNKNOWN
  3. EPIRUBICIN [Concomitant]
     Dosage: UNK, UNKNOWN

REACTIONS (4)
  - NEPHROTIC SYNDROME [None]
  - NEPHRITIS [None]
  - RENAL FAILURE [None]
  - HYPERTENSION [None]
